FAERS Safety Report 9248605 (Version 1)
Quarter: 2013Q1

REPORT INFORMATION
  Report Type: Spontaneous
  Country: US (occurrence: None)
  Receive Date: 20130305
  Receipt Date: 20130305
  Transmission Date: 20140127
  Serious: Yes (Other)
  Sender: FDA-Public Use
  Company Number: 163-21880-12092687

PATIENT
  Age: 56 Year
  Sex: Male
  Weight: 78.47 kg

DRUGS (8)
  1. REVLIMID [Suspect]
     Indication: PLASMA CELL MYELOMA
     Dosage: 21 IN 21 D
     Route: 048
     Dates: start: 20110301
  2. AREDIA (PAMIDRONATE DISODIUM) [Concomitant]
  3. ASPIRIN (ACETYLSALICYLIC ACID) [Concomitant]
  4. CARNITINE (CARNITINE) [Concomitant]
  5. DEXAMETHASONE (DEXAMETHASONE) [Concomitant]
  6. OMEPRAZOLE (OMEPRAZOLE) [Concomitant]
  7. TYLENOL (PARACETAMOL) [Concomitant]
  8. VITAMIN E (TOCOPHEROL) [Concomitant]

REACTIONS (1)
  - Diarrhoea [None]
